FAERS Safety Report 5052547-5 (Version None)
Quarter: 2006Q3

REPORT INFORMATION
  Report Type: 
  Country: None (occurrence: None)
  Receive Date: 20060717
  Receipt Date: 20050302
  Transmission Date: 20061208
  Serious: Yes (Hospitalization)
  Sender: FDA-Public Use
  Company Number: US-GLAXOSMITHKLINE-A0548238A

PATIENT
  Age: 48 Year
  Sex: Male
  Weight: 77.7 kg

DRUGS (3)
  1. IMITREX [Suspect]
     Dosage: 50MG AS REQUIRED
     Route: 048
     Dates: end: 20020226
  2. NEXIUM [Concomitant]
  3. ZOCOR [Concomitant]

REACTIONS (9)
  - ARTERIOSPASM CORONARY [None]
  - BLOOD POTASSIUM DECREASED [None]
  - BRADYCARDIA [None]
  - CARDIAC DISORDER [None]
  - CARDIAC ENZYMES INCREASED [None]
  - CHEST PAIN [None]
  - FATIGUE [None]
  - MYOCARDIAL INFARCTION [None]
  - PERICARDITIS [None]
